FAERS Safety Report 8396491-4 (Version None)
Quarter: 2012Q2

REPORT INFORMATION
  Report Type: 
  Country: None (occurrence: None)
  Receive Date: 20120530
  Receipt Date: 20120523
  Transmission Date: 20120825
  Serious: Yes (Hospitalization, Other)
  Sender: FDA-Public Use
  Company Number: FR-ACTELION-A-CH2011-51110

PATIENT
  Sex: Female
  Weight: 25 kg

DRUGS (10)
  1. LAMICTAL [Suspect]
     Dosage: UNK
     Dates: start: 20110801, end: 20110901
  2. LAMICTAL [Suspect]
     Dosage: UNK
  3. ZAVESCA [Suspect]
     Dosage: 200 MG, BID
     Route: 048
  4. DEPAKENE [Suspect]
     Dosage: UNK
     Dates: end: 20110701
  5. ZAVESCA [Suspect]
     Indication: NIEMANN-PICK DISEASE
     Dosage: 200 MG, BID
     Route: 048
     Dates: start: 20100921, end: 20110701
  6. ZAVESCA [Suspect]
     Dosage: 150 MG, BID
     Route: 048
     Dates: start: 20100608
  7. LAMICTAL [Suspect]
     Dosage: UNK
     Dates: end: 20110701
  8. DEPAKENE [Suspect]
     Dosage: UNK
     Dates: start: 20110801, end: 20110901
  9. ZAVESCA [Suspect]
     Dosage: UNK
     Route: 048
     Dates: start: 20110801, end: 20110901
  10. ZAVESCA [Suspect]
     Dosage: UNK
     Route: 048
     Dates: start: 20111001

REACTIONS (5)
  - EPISTAXIS [None]
  - PLATELET COUNT DECREASED [None]
  - CONCOMITANT DISEASE AGGRAVATED [None]
  - COAGULATION FACTOR DECREASED [None]
  - EAR HAEMORRHAGE [None]
